FAERS Safety Report 7315794-5 (Version None)
Quarter: 2011Q1

REPORT INFORMATION
  Report Type: 
  Country: None (occurrence: None)
  Receive Date: 20110225
  Receipt Date: 20110218
  Transmission Date: 20110831
  Serious: Yes (Hospitalization)
  Sender: FDA-Public Use
  Company Number: JP-MERCK-1102USA02425

PATIENT
  Age: 51 Year
  Sex: Female

DRUGS (4)
  1. AMARYL [Concomitant]
     Indication: DIABETES MELLITUS
     Route: 048
     Dates: start: 20090101
  2. HYZAAR [Concomitant]
     Route: 048
     Dates: start: 20090101
  3. JANUVIA [Suspect]
     Indication: DIABETES MELLITUS
     Route: 048
     Dates: start: 20100530
  4. AMLODIPINE BESYLATE [Concomitant]
     Indication: HYPERTENSION
     Route: 048
     Dates: start: 20090101

REACTIONS (1)
  - ANGINA UNSTABLE [None]
